FAERS Safety Report 6759969-2 (Version None)
Quarter: 2010Q2

REPORT INFORMATION
  Report Type: 
  Country: None (occurrence: None)
  Receive Date: 20100608
  Receipt Date: 20100525
  Transmission Date: 20101027
  Serious: Yes (Other)
  Sender: FDA-Public Use
  Company Number: PHFR2010GB00781

PATIENT
  Sex: Male

DRUGS (3)
  1. CLOZARIL [Suspect]
     Indication: SCHIZOPHRENIA
     Dosage: UNK
     Route: 048
     Dates: start: 20070813
  2. CLOZARIL [Suspect]
     Dosage: 400 MG/DAY
  3. NICORETTE ^HOECHST MARION ROUSSEL^ [Concomitant]
     Dosage: UNK

REACTIONS (2)
  - MENTAL IMPAIRMENT [None]
  - URINARY TRACT INFECTION [None]
